FAERS Safety Report 21760270 (Version 1)
Quarter: 2022Q4

REPORT INFORMATION
  Report Type: Spontaneous
  Country: US (occurrence: None)
  Receive Date: 20221220
  Receipt Date: 20221220
  Transmission Date: 20230112
  Serious: Yes (Life-Threatening, Hospitalization)
  Sender: FDA-Public Use
  Company Number: None

PATIENT
  Age: 84 Year
  Sex: Male
  Weight: 84.6 kg

DRUGS (9)
  1. HYDROXYCHLOROQUINE SULFATE [Suspect]
     Active Substance: HYDROXYCHLOROQUINE SULFATE
     Indication: SARS-CoV-2 test positive
     Dosage: OTHER QUANTITY : 1 CAPSULE(S);?FREQUENCY : TWICE A DAY;?
     Route: 048
     Dates: start: 20220606, end: 20220613
  2. LISINOPRIL [Concomitant]
     Active Substance: LISINOPRIL
  3. MEXILETINE [Concomitant]
     Active Substance: MEXILETINE
  4. CARVEDILOL [Concomitant]
     Active Substance: CARVEDILOL
  5. SPIRONOLACTONE [Concomitant]
     Active Substance: SPIRONOLACTONE
  6. Warfrin [Concomitant]
  7. SIMVASTATIN [Concomitant]
     Active Substance: SIMVASTATIN
  8. ALLOPURINOL [Concomitant]
     Active Substance: ALLOPURINOL
  9. ALENDRONATE SODIUM [Concomitant]
     Active Substance: ALENDRONATE SODIUM

REACTIONS (5)
  - Cardiac arrest [None]
  - Ventricular arrhythmia [None]
  - Ventricular tachycardia [None]
  - Ventricular fibrillation [None]
  - Electrocardiogram QT prolonged [None]

NARRATIVE: CASE EVENT DATE: 20220613
